FAERS Safety Report 8312753-0 (Version None)
Quarter: 2012Q2

REPORT INFORMATION
  Report Type: 
  Country: None (occurrence: None)
  Receive Date: 20120426
  Receipt Date: 20120416
  Transmission Date: 20120825
  Serious: Yes (Death, Hospitalization)
  Sender: FDA-Public Use
  Company Number: JP-AMGEN-JPNSP2011066582

PATIENT
  Age: 69 Year
  Sex: Female

DRUGS (6)
  1. ENBREL [Suspect]
     Indication: RHEUMATOID ARTHRITIS
     Dosage: 25 MG, WEEKLY
     Route: 058
     Dates: start: 20090710, end: 20111213
  2. PREDNISOLONE [Concomitant]
     Dosage: 4 MG, 1X/DAY
     Route: 048
     Dates: start: 20100519, end: 20111213
  3. PREDNISOLONE [Concomitant]
     Indication: ANALGESIC THERAPY
     Dosage: 5 MG, 1X/DAY
     Route: 048
     Dates: start: 20080326, end: 20100518
  4. RHEUMATREX [Suspect]
     Indication: RHEUMATOID ARTHRITIS
     Dosage: 2 MG, 3X/WEEK
     Route: 048
     Dates: start: 20080528, end: 20090203
  5. VOLTAREN [Concomitant]
     Indication: ANALGESIC THERAPY
     Dosage: 37.5 MG, 1X/DAY
     Route: 048
     Dates: start: 20080416, end: 20111213
  6. RHEUMATREX [Suspect]
     Dosage: 2 MG, 4X/WEEK
     Route: 048
     Dates: start: 20090204, end: 20111213

REACTIONS (1)
  - PANCREATIC CARCINOMA [None]
